FAERS Safety Report 6428755-5 (Version None)
Quarter: 2009Q4

REPORT INFORMATION
  Report Type: 
  Country: None (occurrence: None)
  Receive Date: 20091105
  Receipt Date: 20091028
  Transmission Date: 20100525
  Serious: Yes (Other)
  Sender: FDA-Public Use
  Company Number: BE-AVENTIS-200918822GDDC

PATIENT
  Age: 64 Year
  Sex: Male
  Weight: 120 kg

DRUGS (5)
  1. TAXOTERE [Suspect]
     Route: 042
     Dates: start: 20090805
  2. DISPRIL [Concomitant]
     Dosage: DOSE QUANTITY: 1
     Route: 048
     Dates: start: 20080801
  3. PERSANTINE [Concomitant]
     Dosage: DOSE QUANTITY: 150
     Route: 048
     Dates: start: 20080801
  4. TRITACE [Concomitant]
     Route: 048
     Dates: start: 20080801
  5. ZOCOR [Concomitant]
     Route: 048
     Dates: start: 20080801

REACTIONS (4)
  - CONJUNCTIVITIS [None]
  - DIARRHOEA [None]
  - MUSCLE CONTRACTIONS INVOLUNTARY [None]
  - NEUTROPENIA [None]
